FAERS Safety Report 7913563-6 (Version None)
Quarter: 2011Q4

REPORT INFORMATION
  Report Type: 
  Country: None (occurrence: None)
  Receive Date: 20111110
  Receipt Date: 20111102
  Transmission Date: 20120403
  Serious: Yes (Hospitalization, Other)
  Sender: FDA-Public Use
  Company Number: ACO_27246_2011

PATIENT
  Age: 77 Year
  Sex: Female

DRUGS (7)
  1. IMURAN	/00001501/  (AZATHIOPRINE) [Concomitant]
  2. VITAMIN D NOS (VITAMIN D NOS) [Concomitant]
  3. CALCIUM CARBONATE [Concomitant]
  4. VITAMIN C /00008001/ (ASCORBIC ACID) [Concomitant]
  5. ASPIRIN [Concomitant]
  6. DITROPAN [Concomitant]
  7. AMPYRA [Suspect]
     Indication: MULTIPLE SCLEROSIS
     Dates: start: 20100301

REACTIONS (2)
  - LOSS OF CONSCIOUSNESS [None]
  - CONVULSION [None]
